FAERS Safety Report 6976863-2 (Version None)
Quarter: 2010Q3

REPORT INFORMATION
  Report Type: 
  Country: None (occurrence: None)
  Receive Date: 20100910
  Receipt Date: 20100831
  Transmission Date: 20110219
  Serious: Yes (Hospitalization)
  Sender: FDA-Public Use
  Company Number: B0595825A

PATIENT
  Sex: Female
  Weight: 41 kg

DRUGS (6)
  1. TYKERB [Suspect]
     Indication: BREAST CANCER
     Dosage: 1250MG PER DAY
     Route: 048
     Dates: start: 20090918, end: 20090925
  2. XELODA [Concomitant]
     Indication: BREAST CANCER
     Dosage: 3000MG PER DAY
     Route: 048
     Dates: start: 20090918, end: 20090925
  3. PYDOXAL [Concomitant]
     Route: 048
     Dates: start: 20090918, end: 20090925
  4. LAC B [Concomitant]
     Route: 048
  5. CHINESE MEDICINE [Concomitant]
     Route: 048
  6. MUCOSTA [Concomitant]
     Route: 048
     Dates: start: 20090918, end: 20090925

REACTIONS (1)
  - HYPERBILIRUBINAEMIA [None]
